FAERS Safety Report 10268110 (Version 1)
Quarter: 2014Q2

REPORT INFORMATION
  Report Type: Spontaneous
  Country: US (occurrence: US)
  Receive Date: 20140630
  Receipt Date: 20140630
  Transmission Date: 20141212
  Serious: No
  Sender: FDA-Public Use
  Company Number: US-PFIZER INC-2014174550

PATIENT
  Age: 42 Year
  Sex: Female

DRUGS (11)
  1. LYRICA [Suspect]
     Indication: DEPRESSION
     Dosage: 75 MG, 2X/DAY
     Route: 048
     Dates: start: 2014, end: 20140622
  2. LYRICA [Suspect]
     Indication: BIPOLAR DISORDER
  3. LYRICA [Suspect]
     Indication: NERVE INJURY
  4. TRICOR [Concomitant]
     Indication: BLOOD CHOLESTEROL INCREASED
     Dosage: 145 MG, UNK
  5. CELEXA [Concomitant]
     Dosage: 20 MG, UNK
  6. KLONOPIN [Concomitant]
     Dosage: 01 MG, 3X/DAY
  7. SEROQUEL XR [Concomitant]
     Dosage: 300 MG, DAILY
  8. CHLORDIAZEPOXIDE/CLIDINIUM [Concomitant]
     Dosage: (CHLORDIAZEPOXIDE 5 MG/CLIDINIUM 2.25 MG), AS NEEDED
  9. ASPIRIN [Concomitant]
     Dosage: UNK
  10. VIRASAL [Concomitant]
     Dosage: UNK, 2X/DAY
  11. IBUPROFEN [Concomitant]
     Dosage: UNK

REACTIONS (12)
  - Haemorrhoids [Not Recovered/Not Resolved]
  - Cheilitis [Unknown]
  - Rash [Unknown]
  - Blister [Unknown]
  - Swelling face [Unknown]
  - Pruritus [Unknown]
  - Constipation [Unknown]
  - Vision blurred [Unknown]
  - Rash macular [Unknown]
  - Drug intolerance [Unknown]
  - Drug ineffective [Unknown]
  - Eye swelling [Unknown]
